FAERS Safety Report 8591789-9 (Version None)
Quarter: 2012Q3

REPORT INFORMATION
  Report Type: 
  Country: None (occurrence: None)
  Receive Date: 20120814
  Receipt Date: 20120807
  Transmission Date: 20120928
  Serious: Yes (Other)
  Sender: FDA-Public Use
  Company Number: PHHY2012VE069535

PATIENT
  Sex: Female

DRUGS (2)
  1. CALCIUM [Concomitant]
     Route: 048
  2. ZOLEDRONOC ACID [Suspect]
     Dosage: 5 MG, UNK
     Route: 042
     Dates: start: 20120501

REACTIONS (1)
  - JOINT DISLOCATION [None]
